FAERS Safety Report 20780854 (Version 1)
Quarter: 2022Q2

REPORT INFORMATION
  Report Type: Report from Study
  Country: AR (occurrence: AR)
  Receive Date: 20220504
  Receipt Date: 20220504
  Transmission Date: 20220721
  Serious: Yes (Other)
  Sender: FDA-Public Use
  Company Number: AR-NOVARTISPH-NVSC2021AR296623

PATIENT
  Age: 53 Year
  Sex: Male

DRUGS (3)
  1. COSENTYX [Suspect]
     Active Substance: SECUKINUMAB
     Indication: Psoriasis
     Dosage: 300 MG, QMO
     Route: 058
     Dates: start: 20211213
  2. COSENTYX [Suspect]
     Active Substance: SECUKINUMAB
     Dosage: UNK
     Route: 065
     Dates: start: 202201, end: 20220203
  3. DORZOLAMIDE [Concomitant]
     Active Substance: DORZOLAMIDE
     Indication: Asthenopia
     Dosage: 1 DRP, QD (1 DROP IN EACH EYE)
     Route: 065

REACTIONS (16)
  - Optic nerve injury [Unknown]
  - Retinal injury [Unknown]
  - Myalgia [Unknown]
  - Bone pain [Unknown]
  - Thermal burn [Unknown]
  - Oropharyngeal pain [Unknown]
  - Memory impairment [Unknown]
  - Oropharyngeal discomfort [Unknown]
  - Pyrexia [Unknown]
  - Throat irritation [Unknown]
  - Dry throat [Unknown]
  - Symptom recurrence [Unknown]
  - Arthralgia [Unknown]
  - Feeling abnormal [Unknown]
  - Musculoskeletal stiffness [Unknown]
  - Product availability issue [Unknown]

NARRATIVE: CASE EVENT DATE: 20211222
